FAERS Safety Report 15768197 (Version 3)
Quarter: 2019Q1

REPORT INFORMATION
  Report Type: Report from Study
  Country: US (occurrence: US)
  Receive Date: 20181227
  Receipt Date: 20190222
  Transmission Date: 20190417
  Serious: Yes (Hospitalization, Other)
  Sender: FDA-Public Use
  Company Number: US-ACTELION-A-NJ2018-184014

PATIENT
  Age: 27 Year
  Sex: Male
  Weight: 68.27 kg

DRUGS (3)
  1. ADCIRCA [Concomitant]
     Active Substance: TADALAFIL
  2. REMODULIN [Concomitant]
     Active Substance: TREPROSTINIL
  3. OPSUMIT [Suspect]
     Active Substance: MACITENTAN
     Indication: PULMONARY ARTERIAL HYPERTENSION
     Dosage: 10 MG, QD
     Route: 048

REACTIONS (5)
  - Nasopharyngitis [Unknown]
  - Malaise [Unknown]
  - Syncope [Unknown]
  - Seizure [Unknown]
  - Muscle spasms [Unknown]

NARRATIVE: CASE EVENT DATE: 20181211
